FAERS Safety Report 11929920 (Version 1)
Quarter: 2016Q1

REPORT INFORMATION
  Report Type: Spontaneous
  Country: US (occurrence: None)
  Receive Date: 20160119
  Receipt Date: 20160119
  Transmission Date: 20160526
  Serious: No
  Sender: FDA-Public Use
  Company Number: None

PATIENT
  Age: 81 Year
  Sex: Female
  Weight: 74.39 kg

DRUGS (9)
  1. BUFFERIN [Concomitant]
     Active Substance: ASPIRIN
  2. CALCIUM [Concomitant]
     Active Substance: CALCIUM
  3. VITAMIN B [Concomitant]
     Active Substance: VITAMIN B
  4. VITAMIN A [Concomitant]
     Active Substance: VITAMIN A
  5. BENADRYL [Concomitant]
     Active Substance: DIPHENHYDRAMINE HYDROCHLORIDE
  6. VITAMIN C [Concomitant]
     Active Substance: ASCORBIC ACID
  7. VITAMIN D [Concomitant]
     Active Substance: CHOLECALCIFEROL
  8. MOXIFLOXACIN HCL [Suspect]
     Active Substance: MOXIFLOXACIN
     Indication: DIVERTICULITIS
     Route: 048
     Dates: start: 20151124, end: 20151127
  9. VITAMIN E [Concomitant]
     Active Substance: .ALPHA.-TOCOPHEROL

REACTIONS (6)
  - Burning sensation [None]
  - Arthropathy [None]
  - Neck pain [None]
  - Headache [None]
  - Rotator cuff syndrome [None]
  - Nerve compression [None]

NARRATIVE: CASE EVENT DATE: 20151127
